FAERS Safety Report 25585718 (Version 1)
Quarter: 2025Q3

REPORT INFORMATION
  Report Type: Spontaneous
  Country: CN (occurrence: CN)
  Receive Date: 20250721
  Receipt Date: 20250721
  Transmission Date: 20251021
  Serious: Yes (Other)
  Sender: PFIZER
  Company Number: CN-PFIZER INC-PV202500086230

PATIENT
  Age: 2 Year
  Sex: Male
  Weight: 13 kg

DRUGS (5)
  1. CYTARABINE [Suspect]
     Active Substance: CYTARABINE
     Indication: Acute myeloid leukaemia
     Dosage: 6 MG, 2X/DAY
     Route: 058
     Dates: start: 20250623, end: 20250702
  2. CYTARABINE [Suspect]
     Active Substance: CYTARABINE
     Indication: Chemotherapy
  3. IDARUBICIN [Concomitant]
     Active Substance: IDARUBICIN
     Indication: Acute myeloid leukaemia
     Route: 041
     Dates: start: 20250623, end: 20250623
  4. IDARUBICIN [Concomitant]
     Active Substance: IDARUBICIN
     Indication: Chemotherapy
     Route: 041
     Dates: start: 20250625, end: 20250625
  5. IDARUBICIN [Concomitant]
     Active Substance: IDARUBICIN
     Route: 041
     Dates: start: 20250627, end: 20250627

REACTIONS (3)
  - Pyrexia [Recovered/Resolved]
  - Fungal infection [Recovered/Resolved]
  - C-reactive protein increased [Recovered/Resolved]

NARRATIVE: CASE EVENT DATE: 20250627
